FAERS Safety Report 13554526 (Version 1)
Quarter: 2017Q2

REPORT INFORMATION
  Report Type: Spontaneous
  Country: US (occurrence: US)
  Receive Date: 20170516
  Receipt Date: 20170516
  Transmission Date: 20170830
  Serious: Yes (Other)
  Sender: FDA-Public Use
  Company Number: None

PATIENT
  Age: 27 Year
  Sex: Female
  Weight: 85.5 kg

DRUGS (1)
  1. ANTI ITCH (BENZOCAINE\RESORCINOL) [Suspect]
     Active Substance: BENZOCAINE\RESORCINOL
     Indication: FUNGAL INFECTION
     Dosage: QUANTITY:1 CREAM;?
     Route: 061
     Dates: start: 20170515, end: 20170516

REACTIONS (2)
  - Application site reaction [None]
  - Application site exfoliation [None]

NARRATIVE: CASE EVENT DATE: 20170516
